FAERS Safety Report 7119703-3 (Version None)
Quarter: 2010Q4

REPORT INFORMATION
  Report Type: 
  Country: None (occurrence: None)
  Receive Date: 20101123
  Receipt Date: 20101115
  Transmission Date: 20110411
  Serious: Yes (Hospitalization)
  Sender: FDA-Public Use
  Company Number: IT-ELI_LILLY_AND_COMPANY-IT201011003819

PATIENT
  Age: 68 Year
  Sex: Female

DRUGS (4)
  1. BYETTA [Suspect]
     Indication: DIABETES MELLITUS
     Dosage: UNK, 3/D
     Route: 058
     Dates: start: 20101005, end: 20101025
  2. LITHIUM [Concomitant]
  3. LANTUS [Concomitant]
  4. SERENASE                           /00027401/ [Concomitant]

REACTIONS (4)
  - CONFUSIONAL STATE [None]
  - DECREASED APPETITE [None]
  - NAUSEA [None]
  - OFF LABEL USE [None]
